FAERS Safety Report 6134313-2 (Version None)
Quarter: 2009Q1

REPORT INFORMATION
  Report Type: 
  Country: None (occurrence: None)
  Receive Date: 20090325
  Receipt Date: 20090318
  Transmission Date: 20090719
  Serious: Yes (Death, Hospitalization)
  Sender: FDA-Public Use
  Company Number: WAES 0903USA03366

PATIENT
  Age: 47 Year
  Sex: Female

DRUGS (4)
  1. DECADRON [Suspect]
     Indication: NON-SMALL CELL LUNG CANCER
     Dosage: PO
     Route: 048
     Dates: start: 20080723
  2. FOLIC ACID [Suspect]
     Indication: NON-SMALL CELL LUNG CANCER
     Dosage: 5 MG/DAILY PO
     Route: 048
     Dates: start: 20080722
  3. ALIMTA [Suspect]
     Indication: NON-SMALL CELL LUNG CANCER
     Dosage: IV
     Route: 042
     Dates: start: 20080723
  4. CYANOCOBALAMIN [Concomitant]

REACTIONS (1)
  - PLEURAL EFFUSION [None]
